FAERS Safety Report 12899279 (Version 11)
Quarter: 2020Q1

REPORT INFORMATION
  Report Type: Report from Study
  Country: DE (occurrence: DE)
  Receive Date: 20161101
  Receipt Date: 20200121
  Transmission Date: 20200409
  Serious: Yes (Hospitalization, Other)
  Sender: FDA-Public Use
  Company Number: DE-ROCHE-1844357

PATIENT
  Age: 55 Year
  Sex: Female
  Weight: 93 kg

DRUGS (16)
  1. TOCILIZUMAB. [Suspect]
     Active Substance: TOCILIZUMAB
     Route: 058
     Dates: start: 20160815, end: 20161020
  2. TOCILIZUMAB. [Suspect]
     Active Substance: TOCILIZUMAB
     Route: 058
     Dates: start: 20161204
  3. PANTOPRAZOL [PANTOPRAZOLE] [Concomitant]
     Active Substance: PANTOPRAZOLE
     Route: 048
     Dates: start: 20160501, end: 20161010
  4. SALOFALK [MESALAZINE] [Concomitant]
     Active Substance: MESALAMINE
     Route: 054
     Dates: start: 20160515
  5. OMEPRAZOL [OMEPRAZOLE] [Concomitant]
     Active Substance: OMEPRAZOLE
     Route: 048
     Dates: start: 20150801, end: 20160501
  6. TOCILIZUMAB. [Suspect]
     Active Substance: TOCILIZUMAB
     Indication: RHEUMATOID ARTHRITIS
     Route: 058
     Dates: start: 20150129, end: 20150604
  7. TOCILIZUMAB. [Suspect]
     Active Substance: TOCILIZUMAB
     Route: 058
     Dates: start: 20160122, end: 20160708
  8. TOCILIZUMAB. [Suspect]
     Active Substance: TOCILIZUMAB
     Route: 058
     Dates: start: 20150703, end: 20151218
  9. PREDNISOLON [PREDNISOLONE] [Concomitant]
     Active Substance: PREDNISOLONE
     Route: 048
     Dates: start: 20160915
  10. PREDNISOLON [PREDNISOLONE] [Concomitant]
     Active Substance: PREDNISOLONE
     Dosage: 25-30 MG
     Route: 048
     Dates: start: 20161222, end: 20170102
  11. SALOFALK [MESALAZINE] [Concomitant]
     Active Substance: MESALAMINE
     Route: 054
     Dates: start: 20160501
  12. PREDNISOLON [PREDNISOLONE] [Concomitant]
     Active Substance: PREDNISOLONE
     Indication: RHEUMATOID ARTHRITIS
     Route: 048
     Dates: start: 20160701, end: 20160901
  13. SALOFALK [MESALAZINE] [Concomitant]
     Active Substance: MESALAMINE
     Route: 048
     Dates: start: 20160501
  14. SALOFALK [MESALAZINE] [Concomitant]
     Active Substance: MESALAMINE
     Route: 048
     Dates: start: 20160515
  15. OMEPRAZOL [OMEPRAZOLE] [Concomitant]
     Active Substance: OMEPRAZOLE
     Route: 048
     Dates: start: 20161011
  16. NOVALGIN (METAMIZOLE SODIUM) [Concomitant]
     Active Substance: METAMIZOLE SODIUM
     Indication: RHEUMATOID ARTHRITIS
     Route: 048
     Dates: start: 20160115

REACTIONS (4)
  - Ovarian cyst [Recovered/Resolved with Sequelae]
  - Rhinitis [Recovered/Resolved]
  - Pleurisy [Recovered/Resolved]
  - Bronchitis [Recovered/Resolved]

NARRATIVE: CASE EVENT DATE: 20150301
